FAERS Safety Report 4470499-3 (Version None)
Quarter: 2004Q4

REPORT INFORMATION
  Report Type: 
  Country: None (occurrence: None)
  Receive Date: 20041001
  Receipt Date: 20040917
  Transmission Date: 20050328
  Serious: Yes (Hospitalization, Other)
  Sender: FDA-Public Use
  Company Number: 2004AL000197

PATIENT
  Age: 59 Year
  Sex: Female

DRUGS (10)
  1. KADIAN [Suspect]
  2. METHADONE HCL [Suspect]
     Dosage: 40 MG; QD
  3. GABAPENTIN [Suspect]
     Dosage: 900 MG; QD
  4. BUVICAINE [Concomitant]
  5. CLONIDINE HCL [Concomitant]
  6. KETAMINE HCL [Concomitant]
  7. PROMAZINE HCL [Concomitant]
  8. PILOCARPINE [Concomitant]
  9. DEXAMETHASONE [Concomitant]
  10. CLONAZEPAM [Concomitant]

REACTIONS (13)
  - AGITATION [None]
  - CONFUSIONAL STATE [None]
  - DRUG INEFFECTIVE [None]
  - DRY MOUTH [None]
  - EMOTIONAL DISTRESS [None]
  - HAEMOGLOBIN DECREASED [None]
  - HALLUCINATION [None]
  - HYPOTENSION [None]
  - MYOCLONUS [None]
  - PAIN [None]
  - PARESIS [None]
  - SOMNOLENCE [None]
  - VOMITING [None]
